FAERS Safety Report 5680461-0 (Version None)
Quarter: 2008Q1

REPORT INFORMATION
  Report Type: 
  Country: None (occurrence: None)
  Receive Date: 20080326
  Receipt Date: 20080325
  Transmission Date: 20080703
  Serious: Yes (Hospitalization, Disabling)
  Sender: FDA-Public Use
  Company Number: B0508210A

PATIENT
  Age: 88 Year
  Sex: Male

DRUGS (10)
  1. VALTREX [Suspect]
     Indication: HERPES ZOSTER
     Dosage: 1000MG THREE TIMES PER DAY
     Route: 048
     Dates: start: 20080210, end: 20080213
  2. ZOVIRAX [Concomitant]
     Indication: HERPES ZOSTER
     Dosage: 250MG PER DAY
     Route: 042
     Dates: start: 20080210, end: 20080210
  3. ARASENA-A [Concomitant]
     Indication: HERPES ZOSTER
     Dosage: 600MG PER DAY
     Route: 042
     Dates: start: 20080212
  4. VOLTAREN [Concomitant]
     Indication: PAIN
     Dates: start: 20080211
  5. PREDONINE [Concomitant]
     Indication: PAIN
     Dosage: 30MG PER DAY
     Route: 042
     Dates: start: 20080211
  6. PENTAZOCINE LACTATE [Concomitant]
     Dates: start: 20080211, end: 20080211
  7. ATARAX [Concomitant]
     Dates: start: 20080211, end: 20080211
  8. SODIUM CHLORIDE 0.9% [Concomitant]
  9. ANALGESIC DRUG [Concomitant]
  10. ARASENA-A [Concomitant]
     Route: 061
     Dates: start: 20080210

REACTIONS (1)
  - RENAL FAILURE [None]
